FAERS Safety Report 4307681-1 (Version None)
Quarter: 2004Q1

REPORT INFORMATION
  Report Type: 
  Country: None (occurrence: None)
  Receive Date: 20040227
  Receipt Date: 20040227
  Transmission Date: 20041129
  Serious: Yes (Hospitalization)
  Sender: FDA-Public Use
  Company Number: None

PATIENT
  Age: 54 Year
  Sex: Male
  Weight: 120.2 kg

DRUGS (3)
  1. METOPROLOL [Suspect]
  2. NITROGLYCERIN [Concomitant]
  3. MORPHINE [Concomitant]

REACTIONS (1)
  - BRADYCARDIA [None]
